FAERS Safety Report 8100172 (Version 5)
Quarter: 2013Q4

REPORT INFORMATION
  Report Type: Spontaneous
  Country: US (occurrence: US)
  Receive Date: 20110822
  Receipt Date: 20131203
  Transmission Date: 20140711
  Serious: Yes (Hospitalization)
  Sender: FDA-Public Use
  Company Number: US-GLAXOSMITHKLINE-A0915697A

PATIENT
  Age: 58 Year
  Sex: Male
  Weight: 109.1 kg

DRUGS (1)
  1. AVANDIA [Suspect]
     Indication: DIABETES MELLITUS
     Route: 048
     Dates: start: 199901, end: 20081222

REACTIONS (11)
  - Myocardial infarction [Unknown]
  - Cerebrovascular accident [Unknown]
  - Atrial fibrillation [Unknown]
  - Renal failure chronic [Unknown]
  - Angina pectoris [Unknown]
  - Coronary artery disease [Unknown]
  - Hypertension [Unknown]
  - Cardiac failure congestive [Unknown]
  - Dyslipidaemia [Unknown]
  - Stent placement [Unknown]
  - Angioplasty [Unknown]
